FAERS Safety Report 9194201 (Version 2)
Quarter: 2013Q2

REPORT INFORMATION
  Report Type: Spontaneous
  Country: US (occurrence: US)
  Receive Date: 20130327
  Receipt Date: 20130401
  Transmission Date: 20140414
  Serious: Yes (Death, Hospitalization)
  Sender: FDA-Public Use
  Company Number: US-ABBOTT-13P-163-1067866-00

PATIENT
  Age: 45 Year
  Sex: Male
  Weight: 98.97 kg

DRUGS (10)
  1. HUMIRA [Suspect]
     Indication: SARCOIDOSIS
     Dates: start: 20120207, end: 20120213
  2. KOMBIGLYZE [Concomitant]
     Indication: DIABETES MELLITUS
     Dosage: 2.5/1000 MG
  3. ASPIRIN [Concomitant]
     Indication: PRODUCT USED FOR UNKNOWN INDICATION
  4. CYMBALTA [Concomitant]
     Indication: NEUROPATHY PERIPHERAL
  5. AMBIEN [Concomitant]
     Indication: SLEEP DISORDER
  6. DEPLIN [Concomitant]
     Indication: VITAMIN SUPPLEMENTATION
     Dosage: 7.5 MG DAILY
  7. NEURONTIN [Concomitant]
     Indication: NEUROPATHY PERIPHERAL
  8. VITAMIN B12 [Concomitant]
     Indication: PRODUCT USED FOR UNKNOWN INDICATION
  9. VITAMIN B1 [Concomitant]
     Indication: PRODUCT USED FOR UNKNOWN INDICATION
  10. VITAMIN B6 [Concomitant]
     Indication: PRODUCT USED FOR UNKNOWN INDICATION

REACTIONS (3)
  - Death [Fatal]
  - Rash [Unknown]
  - Off label use [Unknown]
